FAERS Safety Report 24191250 (Version 1)
Quarter: 2024Q3

REPORT INFORMATION
  Report Type: Spontaneous
  Country: GB (occurrence: GB)
  Receive Date: 20240808
  Receipt Date: 20240808
  Transmission Date: 20241016
  Serious: Yes (Other)
  Sender: B BRAUN
  Company Number: GB-B.Braun Medical Inc.-2160189

PATIENT

DRUGS (1)
  1. LIDOCAINE HYDROCHLORIDE [Suspect]
     Active Substance: LIDOCAINE HYDROCHLORIDE
     Indication: Adverse drug reaction
     Dates: start: 20240725, end: 20240726

REACTIONS (5)
  - Syncope [Recovered/Resolved]
  - Dizziness [Recovered/Resolved]
  - Skin burning sensation [Recovered/Resolved]
  - Pain [Recovered/Resolved]
  - Nausea [Recovered/Resolved]
